FAERS Safety Report 7538804-9 (Version None)
Quarter: 2011Q2

REPORT INFORMATION
  Report Type: 
  Country: None (occurrence: None)
  Receive Date: 20110610
  Receipt Date: 20110526
  Transmission Date: 20111010
  Serious: Yes (Hospitalization, Other)
  Sender: FDA-Public Use
  Company Number: US-BAYER-201027398NA

PATIENT
  Age: 36 Year
  Sex: Female
  Weight: 125.17 kg

DRUGS (7)
  1. HUMULIN N [Concomitant]
     Indication: DIABETES MELLITUS
     Dosage: 42 U, HS
     Route: 058
     Dates: start: 20010705
  2. YASMIN [Suspect]
     Dosage: UNK, QD
     Route: 048
     Dates: start: 20060115, end: 20060731
  3. YASMIN [Suspect]
     Indication: PRODUCT USED FOR UNKNOWN INDICATION
     Dosage: UNK UNK, QD
     Route: 048
     Dates: start: 20040827, end: 20070625
  4. YASMIN [Suspect]
     Dosage: UNK, QD
     Route: 048
     Dates: start: 20070118, end: 20070625
  5. LISINOPRIL [Concomitant]
     Dosage: UNK
  6. HUMULIN R [Concomitant]
     Indication: DIABETES MELLITUS
     Dosage: 10 MG, HS
     Route: 058
     Dates: start: 20010705
  7. LISINOPRIL [Concomitant]
     Indication: HYPERTENSION
     Dosage: 20 MG, QD
     Route: 048
     Dates: start: 20070112, end: 20070802

REACTIONS (4)
  - HEART RATE INCREASED [None]
  - DEEP VEIN THROMBOSIS [None]
  - SINUS TACHYCARDIA [None]
  - PULMONARY EMBOLISM [None]
